FAERS Safety Report 19150443 (Version 1)
Quarter: 2021Q2

REPORT INFORMATION
  Report Type: Spontaneous
  Country: US (occurrence: US)
  Receive Date: 20210418
  Receipt Date: 20210418
  Transmission Date: 20210717
  Serious: No
  Sender: FDA-Public Use
  Company Number: US-AMGEN-USASP2021055050

PATIENT
  Sex: Female

DRUGS (11)
  1. ENBREL [Suspect]
     Active Substance: ETANERCEPT
     Indication: RHEUMATOID ARTHRITIS
     Dosage: 50 MILLIGRAM, QWK
     Route: 058
     Dates: start: 2016
  2. ETODOLAC. [Concomitant]
     Active Substance: ETODOLAC
     Dosage: 400 MILLIGRAM
  3. MONISTAT 1 COMBINATION PACK [Concomitant]
     Active Substance: MICONAZOLE NITRATE
     Dosage: UNK (D KIT 1200 AND 2,)
  4. VITAMIN D [ERGOCALCIFEROL] [Concomitant]
     Active Substance: ERGOCALCIFEROL
     Dosage: 25 MICROGRAM (1000)
  5. IRBESARTAN. [Concomitant]
     Active Substance: IRBESARTAN
     Dosage: 300 MILLIGRAM
  6. SILICONE [DIMETICONE] [Concomitant]
     Dosage: UNK
  7. AMLODIPINE BENZOATE [Concomitant]
     Active Substance: AMLODIPINE BENZOATE
     Dosage: UNK (5?10MG)
  8. BACTRIM DS [Concomitant]
     Active Substance: SULFAMETHOXAZOLE\TRIMETHOPRIM
     Dosage: UNK (800160 MG)
  9. POTASSIUM [Concomitant]
     Active Substance: POTASSIUM
     Dosage: UNK (CH PAC 20 MEQ)
  10. VALACYCLOVIR [Concomitant]
     Active Substance: VALACYCLOVIR HYDROCHLORIDE
     Dosage: 500 MILLIGRAM
  11. CHLORTHALIDON [Concomitant]
     Active Substance: CHLORTHALIDONE
     Dosage: 50 MILLIGRAM

REACTIONS (6)
  - Osteoarthritis [Not Recovered/Not Resolved]
  - Fungal infection [Not Recovered/Not Resolved]
  - Cystitis [Not Recovered/Not Resolved]
  - Headache [Not Recovered/Not Resolved]
  - Hot flush [Not Recovered/Not Resolved]
  - Chills [Not Recovered/Not Resolved]

NARRATIVE: CASE EVENT DATE: 2020
